FAERS Safety Report 15617986 (Version 2)
Quarter: 2019Q2

REPORT INFORMATION
  Report Type: Spontaneous
  Country: ES (occurrence: ES)
  Receive Date: 20181114
  Receipt Date: 20190510
  Transmission Date: 20190711
  Serious: Yes (Disabling, Other)
  Sender: FDA-Public Use
  Company Number: ES-MYLANLABS-2018M1085797

PATIENT
  Age: 65 Year
  Sex: Male

DRUGS (8)
  1. OMEPRAZOL                          /00661201/ [Concomitant]
     Active Substance: OMEPRAZOLE
     Indication: GASTROOESOPHAGEAL REFLUX DISEASE
     Dosage: 20 MG, QD,1-0-0
     Route: 048
  2. AMIODARONE [Suspect]
     Active Substance: AMIODARONE
     Indication: SINUS ARRHYTHMIA
     Dosage: 300 MG, QD,0.5-0.5-0
     Route: 048
  3. SIMVASTATIN. [Interacting]
     Active Substance: SIMVASTATIN
     Indication: HYPERCHOLESTEROLAEMIA
     Dosage: 20 MG, QD, 0-0-1
     Route: 048
     Dates: start: 2016
  4. ASPIRIN. [Concomitant]
     Active Substance: ASPIRIN
     Indication: MYOCARDIAL INFARCTION
     Dosage: 100 MG, QD
     Route: 048
  5. TICLODIPINE [Concomitant]
     Indication: MYOCARDIAL INFARCTION
     Dosage: 250 MG, QD,0-1-0
  6. BISOPROLOL [Concomitant]
     Active Substance: BISOPROLOL
     Indication: SINUS ARRHYTHMIA
     Dosage: 5 MG, QD,1-0-0
     Route: 048
  7. AMIODARONE [Interacting]
     Active Substance: AMIODARONE
     Indication: ARRHYTHMIA
     Dosage: 75 MILLIGRAM, BID
     Route: 048
  8. ASPIRIN. [Concomitant]
     Active Substance: ASPIRIN
     Indication: INFARCTION

REACTIONS (2)
  - Myalgia [Recovered/Resolved]
  - Labelled drug-drug interaction medication error [Unknown]

NARRATIVE: CASE EVENT DATE: 2017
